FAERS Safety Report 5563554-8 (Version None)
Quarter: 2007Q4

REPORT INFORMATION
  Report Type: 
  Country: None (occurrence: None)
  Receive Date: 20071217
  Receipt Date: 20070710
  Transmission Date: 20080405
  Serious: No
  Sender: FDA-Public Use
  Company Number: US-ASTRAZENECA-2007UW16166

PATIENT
  Age: 82 Year
  Sex: Male
  Weight: 81.6 kg

DRUGS (8)
  1. CRESTOR [Suspect]
     Indication: BLOOD CHOLESTEROL INCREASED
     Route: 048
     Dates: start: 20070420, end: 20070705
  2. PLAVIX [Concomitant]
  3. ATENOLOL [Concomitant]
  4. HYDROCHLOROTHIAZIDE [Concomitant]
  5. LEXAPRO [Concomitant]
  6. ASPIRIN [Concomitant]
  7. ASCORBIC ACID [Concomitant]
  8. MAGNESIUM [Concomitant]

REACTIONS (6)
  - ANOREXIA [None]
  - BURNING SENSATION [None]
  - CONSTIPATION [None]
  - INSOMNIA [None]
  - PAIN [None]
  - PYREXIA [None]
